FAERS Safety Report 14586508 (Version 1)
Quarter: 2018Q1

REPORT INFORMATION
  Report Type: Spontaneous
  Country: JP (occurrence: JP)
  Receive Date: 20180301
  Receipt Date: 20180301
  Transmission Date: 20180509
  Serious: Yes (Death)
  Sender: FDA-Public Use
  Company Number: PHJP2018JP004768

PATIENT
  Sex: Male

DRUGS (1)
  1. VOTRIENT [Suspect]
     Active Substance: PAZOPANIB HYDROCHLORIDE
     Indication: RENAL CELL CARCINOMA
     Dosage: 800 MG, (DAILY DOSE) UNK
     Route: 048

REACTIONS (4)
  - Death [Fatal]
  - Feeding disorder [Unknown]
  - Asthenia [Unknown]
  - Condition aggravated [Unknown]
